FAERS Safety Report 10063293 (Version 2)
Quarter: 2014Q2

REPORT INFORMATION
  Report Type: Spontaneous
  Country: GB (occurrence: GB)
  Receive Date: 20140407
  Receipt Date: 20140417
  Transmission Date: 20141212
  Serious: Yes (Other)
  Sender: FDA-Public Use
  Company Number: GB-ALLERGAN-1406568US

PATIENT
  Sex: Female

DRUGS (1)
  1. LUMIGAN [Suspect]
     Indication: GLAUCOMA
     Dosage: ONCE DAILY
     Route: 047
     Dates: start: 201403

REACTIONS (5)
  - Visual acuity reduced [Unknown]
  - Eye haemorrhage [Unknown]
  - Retinal injury [Unknown]
  - Retinal cyst [Unknown]
  - Intraocular pressure fluctuation [Unknown]
